FAERS Safety Report 6950063-4 (Version None)
Quarter: 2010Q3

REPORT INFORMATION
  Report Type: 
  Country: None (occurrence: None)
  Receive Date: 20100828
  Receipt Date: 20100126
  Transmission Date: 20110219
  Serious: No
  Sender: FDA-Public Use
  Company Number: US-ABBOTT-10P-163-0623092-00

PATIENT
  Sex: Male
  Weight: 145.28 kg

DRUGS (14)
  1. NIASPAN [Suspect]
     Indication: BLOOD CHOLESTEROL INCREASED
     Dosage: EVERY NIGHT
     Dates: start: 20100101
  2. ZOCOR [Concomitant]
     Indication: BLOOD CHOLESTEROL INCREASED
  3. TERAZOSIN HCL [Concomitant]
     Indication: HYPERTENSION
  4. TERAZOSIN HCL [Concomitant]
     Indication: PROSTATOMEGALY
  5. LOSARTAN POTASSIUM [Concomitant]
     Indication: MYOCARDIAL INFARCTION
  6. CARVEDILOL [Concomitant]
     Indication: PRODUCT USED FOR UNKNOWN INDICATION
  7. FINASTERIDE [Concomitant]
     Indication: PROSTATOMEGALY
  8. PLAVIX [Concomitant]
     Indication: PRODUCT USED FOR UNKNOWN INDICATION
  9. ASPIRIN [Concomitant]
     Indication: PRODUCT USED FOR UNKNOWN INDICATION
  10. ASCORBIC ACID [Concomitant]
     Indication: PRODUCT USED FOR UNKNOWN INDICATION
  11. VITAMIN B-12 [Concomitant]
     Indication: PRODUCT USED FOR UNKNOWN INDICATION
  12. IRON [Concomitant]
     Indication: PRODUCT USED FOR UNKNOWN INDICATION
  13. VITAMIN D [Concomitant]
     Indication: PRODUCT USED FOR UNKNOWN INDICATION
  14. XALATAN [Concomitant]
     Indication: GLAUCOMA
     Dates: start: 20100101

REACTIONS (3)
  - DIZZINESS [None]
  - EYE PAIN [None]
  - TINNITUS [None]
